FAERS Safety Report 21627546 (Version 1)
Quarter: 2022Q4

REPORT INFORMATION
  Report Type: Spontaneous
  Country: NI (occurrence: None)
  Receive Date: 20221120
  Receipt Date: 20221120
  Transmission Date: 20230113
  Serious: Yes (Hospitalization)
  Sender: FDA-Public Use
  Company Number: None

PATIENT
  Age: 27 Year
  Sex: Female
  Weight: 60 kg

DRUGS (1)
  1. MOXIFLOXACIN [Suspect]
     Active Substance: MOXIFLOXACIN
     Indication: COVID-19
     Dosage: FREQUENCY : DAILY;?
     Route: 048
     Dates: start: 20200621, end: 20200624

REACTIONS (10)
  - Tachycardia [None]
  - Anxiety [None]
  - Blood pressure increased [None]
  - Tremor [None]
  - Fear [None]
  - Gait disturbance [None]
  - Suicidal ideation [None]
  - Crying [None]
  - Myocardial infarction [None]
  - Fatigue [None]

NARRATIVE: CASE EVENT DATE: 20200623
